FAERS Safety Report 9360305 (Version 1)
Quarter: 2013Q2

REPORT INFORMATION
  Report Type: Spontaneous
  Country: US (occurrence: US)
  Receive Date: 20130621
  Receipt Date: 20130621
  Transmission Date: 20140414
  Serious: Yes (Hospitalization)
  Sender: FDA-Public Use
  Company Number: US-US-EMD SERONO, INC.-7135049

PATIENT
  Sex: Male
  Weight: 86 kg

DRUGS (1)
  1. REBIF [Suspect]
     Indication: MULTIPLE SCLEROSIS
     Dates: end: 2011

REACTIONS (3)
  - Multiple sclerosis relapse [Recovered/Resolved]
  - Fall [Unknown]
  - Laceration [Unknown]
